FAERS Safety Report 24685181 (Version 2)
Quarter: 2024Q4

REPORT INFORMATION
  Report Type: Report from Study
  Country: IL (occurrence: IL)
  Receive Date: 20241202
  Receipt Date: 20241202
  Transmission Date: 20250115
  Serious: Yes (Other)
  Sender: ALEXION PHARMACEUTICALS
  Company Number: IL-AstraZeneca-CH-00735413A

PATIENT
  Age: 57 Year

DRUGS (4)
  1. BENRALIZUMAB [Suspect]
     Active Substance: BENRALIZUMAB
     Indication: Asthma
     Dosage: 30 MILLIGRAM, EVERY 4 WEEKS FOR THE FIRST 3 DOSES, AND THEN EVERY 8 WEEKS
  2. BENRALIZUMAB [Suspect]
     Active Substance: BENRALIZUMAB
     Dosage: 30 MILLIGRAM, EVERY 4 WEEKS FOR THE FIRST 3 DOSES, AND THEN EVERY 8 WEEKS
  3. CEFUROXIME [Concomitant]
     Active Substance: CEFUROXIME
  4. CEFUROXIME [Concomitant]
     Active Substance: CEFUROXIME

REACTIONS (7)
  - Pneumonia [Not Recovered/Not Resolved]
  - Asthma [Not Recovered/Not Resolved]
  - Pyrexia [Not Recovered/Not Resolved]
  - Cough [Not Recovered/Not Resolved]
  - Dyspnoea [Not Recovered/Not Resolved]
  - Cough [Unknown]
  - Dyspnoea [Not Recovered/Not Resolved]
